FAERS Safety Report 7526946-3 (Version None)
Quarter: 2011Q2

REPORT INFORMATION
  Report Type: 
  Country: None (occurrence: None)
  Receive Date: 20110606
  Receipt Date: 20040705
  Transmission Date: 20111010
  Serious: Yes (Hospitalization, Other)
  Sender: FDA-Public Use
  Company Number: PHFR2004IE01637

PATIENT
  Sex: Male

DRUGS (1)
  1. CLOZAPINE [Suspect]
     Indication: SCHIZOPHRENIA
     Dosage: 125 MG/DAY
     Route: 048
     Dates: start: 20031216, end: 20040626

REACTIONS (5)
  - FATIGUE [None]
  - MASS [None]
  - TERMINAL STATE [None]
  - HAEMOGLOBIN DECREASED [None]
  - GASTROINTESTINAL CARCINOMA [None]
